FAERS Safety Report 18628658 (Version 1)
Quarter: 2020Q4

REPORT INFORMATION
  Report Type: Spontaneous
  Country: US (occurrence: US)
  Receive Date: 20201217
  Receipt Date: 20201217
  Transmission Date: 20210114
  Serious: Yes (Life-Threatening)
  Sender: FDA-Public Use
  Company Number: None

PATIENT
  Age: 18 Year
  Sex: Male
  Weight: 119 kg

DRUGS (1)
  1. CARBAMAZEPINE. [Suspect]
     Active Substance: CARBAMAZEPINE
     Indication: DEPRESSION
     Route: 048

REACTIONS (7)
  - Aspartate aminotransferase increased [None]
  - Alanine aminotransferase increased [None]
  - Chest X-ray abnormal [None]
  - Hypoxia [None]
  - Cardiomegaly [None]
  - Pyrexia [None]
  - Blood alkaline phosphatase increased [None]

NARRATIVE: CASE EVENT DATE: 20201212
